FAERS Safety Report 24375411 (Version 2)
Quarter: 2024Q4

REPORT INFORMATION
  Report Type: Report from Study
  Country: US (occurrence: US)
  Receive Date: 20240928
  Receipt Date: 20241129
  Transmission Date: 20250115
  Serious: Yes (Hospitalization, Other)
  Sender: ABBVIE
  Company Number: US-ABBVIE-5939177

PATIENT
  Age: 48 Year
  Sex: Female
  Weight: 78.925 kg

DRUGS (4)
  1. SKYRIZI [Suspect]
     Active Substance: RISANKIZUMAB-RZAA
     Indication: Crohn^s disease
     Dosage: FIRST ADMIN DATE- 2024
     Route: 058
     Dates: end: 20240613
  2. SKYRIZI [Suspect]
     Active Substance: RISANKIZUMAB-RZAA
     Route: 058
     Dates: start: 20240924
  3. SKYRIZI [Suspect]
     Active Substance: RISANKIZUMAB-RZAA
     Indication: Crohn^s disease
     Route: 042
     Dates: start: 2022
  4. SKYRIZI [Suspect]
     Active Substance: RISANKIZUMAB-RZAA
     Indication: Crohn^s disease
     Dosage: UNKNOWN
     Route: 042
     Dates: start: 202209, end: 20240613

REACTIONS (7)
  - Arthritis [Recovering/Resolving]
  - Impaired healing [Recovering/Resolving]
  - Device issue [Not Recovered/Not Resolved]
  - Immunodeficiency [Recovering/Resolving]
  - Incision site discharge [Not Recovered/Not Resolved]
  - Diverticulitis [Recovered/Resolved]
  - Abnormal faeces [Unknown]

NARRATIVE: CASE EVENT DATE: 20220901
